FAERS Safety Report 8204513-6 (Version None)
Quarter: 2012Q1

REPORT INFORMATION
  Report Type: 
  Country: None (occurrence: None)
  Receive Date: 20120313
  Receipt Date: 20120228
  Transmission Date: 20120608
  Serious: Yes (Death)
  Sender: FDA-Public Use
  Company Number: US-MYLANLABS-2012S1004674

PATIENT
  Age: 27 Year
  Sex: Female

DRUGS (13)
  1. SERTRALINE HYDROCHLORIDE [Suspect]
     Dosage: 50MG DAILY
     Route: 065
  2. HALOPERIDOL [Suspect]
     Indication: AGITATION
     Dosage: 5MG
     Route: 030
  3. SERTRALINE HYDROCHLORIDE [Suspect]
     Dosage: ONE DOSE OF 50MG
     Route: 065
  4. LORAZEPAM [Suspect]
     Indication: AGITATION
     Dosage: 2MG
     Route: 042
  5. LORAZEPAM [Suspect]
     Indication: CATATONIA
     Dosage: 2MG
     Route: 042
  6. LORAZEPAM [Suspect]
     Dosage: SINGLE DOSE OF 2MG
     Route: 030
  7. SERTRALINE HYDROCHLORIDE [Suspect]
     Dosage: 50MG
     Route: 065
  8. LORAZEPAM [Suspect]
     Dosage: 1MG
     Route: 065
  9. LORAZEPAM [Suspect]
     Dosage: 1MG
     Route: 065
  10. LORAZEPAM [Suspect]
     Dosage: SINGLE DOSE OF 2MG
     Route: 030
  11. RISPERIDONE [Suspect]
     Dosage: 0.5MG AT BEDTIME
     Route: 065
  12. SERTRALINE HYDROCHLORIDE [Suspect]
     Indication: DEPRESSION
     Route: 065
  13. QUETIAPINE [Suspect]
     Dosage: 25MG
     Route: 065

REACTIONS (1)
  - PULMONARY EMBOLISM [None]
